FAERS Safety Report 24971230 (Version 1)
Quarter: 2025Q1

REPORT INFORMATION
  Report Type: Spontaneous
  Country: US (occurrence: None)
  Receive Date: 20250213
  Receipt Date: 20250213
  Transmission Date: 20250409
  Serious: Yes (unspecified)
  Sender: FDA-CTU
  Company Number: None

PATIENT
  Age: 82 Year
  Sex: Female

DRUGS (4)
  1. KISUNLA [Suspect]
     Active Substance: DONANEMAB-AZBT
     Route: 042
  2. KISUNLA [Concomitant]
     Active Substance: DONANEMAB-AZBT
     Dates: start: 20241120
  3. KISUNLA [Concomitant]
     Active Substance: DONANEMAB-AZBT
     Dates: start: 20241219
  4. KISUNLA [Concomitant]
     Active Substance: DONANEMAB-AZBT

REACTIONS (3)
  - Back pain [None]
  - Muscle spasms [None]
  - Muscle spasms [None]

NARRATIVE: CASE EVENT DATE: 20241219
